FAERS Safety Report 4703795-2 (Version None)
Quarter: 2005Q2

REPORT INFORMATION
  Report Type: 
  Country: None (occurrence: None)
  Receive Date: 20050629
  Receipt Date: 20050629
  Transmission Date: 20051028
  Serious: Yes (Disabling)
  Sender: FDA-Public Use
  Company Number: None

PATIENT
  Sex: Male
  Weight: 72.5755 kg

DRUGS (1)
  1. VIAGRA [Suspect]
     Indication: ERECTILE DYSFUNCTION
     Dosage: 1 TABLET AS NEEDED   (4 TO 5 DOSES ONLY)

REACTIONS (5)
  - ANHEDONIA [None]
  - DRUG INEFFECTIVE [None]
  - MACULAR DEGENERATION [None]
  - PAIN [None]
  - VISUAL ACUITY REDUCED [None]
